FAERS Safety Report 24366139 (Version 1)
Quarter: 2024Q3

REPORT INFORMATION
  Report Type: Spontaneous
  Country: US (occurrence: None)
  Receive Date: 20240925
  Receipt Date: 20240925
  Transmission Date: 20241016
  Serious: Yes (Hospitalization)
  Sender: Public
  Company Number: None

PATIENT
  Sex: Female

DRUGS (3)
  1. PROLIA [Suspect]
     Active Substance: DENOSUMAB
     Indication: Senile osteoporosis
     Dosage: OTHER FREQUENCY : EVERY6MONTHS;?
     Route: 058
     Dates: start: 20181130
  2. VIREAD [Concomitant]
  3. TENOFOVIR DISOPROXIL FU MARATE [Concomitant]

REACTIONS (1)
  - Transient ischaemic attack [None]
